FAERS Safety Report 4885245-9 (Version None)
Quarter: 2005Q4

REPORT INFORMATION
  Report Type: 
  Country: None (occurrence: None)
  Receive Date: 20051214
  Receipt Date: 20050913
  Transmission Date: 20060501
  Serious: No
  Sender: FDA-Public Use
  Company Number: RS005469-USA

PATIENT
  Sex: Female

DRUGS (1)
  1. ACIPHEX [Suspect]
     Dosage: ORAL
     Route: 048

REACTIONS (2)
  - SWELLING FACE [None]
  - THROAT TIGHTNESS [None]
